FAERS Safety Report 9767926 (Version 2)
Quarter: 2013Q4

REPORT INFORMATION
  Report Type: Spontaneous
  Country: ES (occurrence: ES)
  Receive Date: 20131217
  Receipt Date: 20131223
  Transmission Date: 20140711
  Serious: Yes (Death, Hospitalization, Other)
  Sender: FDA-Public Use
  Company Number: ES-VERTEX PHARMACEUTICALS INC-2013-011856

PATIENT
  Age: 56 Year
  Sex: Male

DRUGS (7)
  1. INCIVO [Suspect]
     Indication: HEPATITIS C
  2. RIBAVIRIN [Suspect]
     Indication: HEPATITIS C
  3. INTERFERON [Suspect]
     Indication: HEPATITIS C
  4. TACROLIMUS [Concomitant]
  5. SINTRON [Concomitant]
  6. OMEPRAZOLE [Concomitant]
  7. ENALAPRIL [Concomitant]

REACTIONS (7)
  - Acute pulmonary oedema [Fatal]
  - Gastrointestinal haemorrhage [Recovered/Resolved]
  - Encephalopathy [Recovered/Resolved]
  - Renal failure [Not Recovered/Not Resolved]
  - Condition aggravated [Unknown]
  - Hepatic function abnormal [Not Recovered/Not Resolved]
  - Off label use [Unknown]
